FAERS Safety Report 10049370 (Version 2)
Quarter: 2014Q2

REPORT INFORMATION
  Report Type: Spontaneous
  Country: US (occurrence: US)
  Receive Date: 20140401
  Receipt Date: 20140414
  Transmission Date: 20141212
  Serious: Yes (Hospitalization)
  Sender: FDA-Public Use
  Company Number: US-009507513-1403USA013805

PATIENT
  Sex: Male

DRUGS (2)
  1. PROVENTIL [Suspect]
     Dosage: UNK
     Dates: start: 2012
  2. VENTOLIN (ALBUTEROL SULFATE) [Suspect]

REACTIONS (2)
  - Adverse event [Unknown]
  - Wrong technique in drug usage process [Unknown]
